FAERS Safety Report 6777920-6 (Version None)
Quarter: 2010Q2

REPORT INFORMATION
  Report Type: 
  Country: None (occurrence: None)
  Receive Date: 20100618
  Receipt Date: 20100614
  Transmission Date: 20101027
  Serious: Yes (Hospitalization)
  Sender: FDA-Public Use
  Company Number: US-BIOGENIDEC-2010BI019432

PATIENT
  Age: 44 Year
  Sex: Female

DRUGS (3)
  1. TYSABRI [Suspect]
     Indication: MULTIPLE SCLEROSIS
     Route: 042
     Dates: start: 20050125
  2. TYSABRI [Suspect]
     Route: 042
     Dates: start: 20070119, end: 20070518
  3. TYSABRI [Suspect]
     Route: 042
     Dates: start: 20071220

REACTIONS (2)
  - PANCREATITIS [None]
  - PNEUMONIA [None]
